FAERS Safety Report 5562704-7 (Version None)
Quarter: 2007Q4

REPORT INFORMATION
  Report Type: 
  Country: None (occurrence: None)
  Receive Date: 20071211
  Receipt Date: 20071211
  Transmission Date: 20080405
  Serious: Yes (Hospitalization, Other)
  Sender: FDA-Public Use
  Company Number: None

PATIENT
  Age: 42 Year
  Sex: Female
  Weight: 53.0709 kg

DRUGS (1)
  1. CELEXA [Suspect]
     Indication: PREMENSTRUAL SYNDROME
     Dosage: 1 TABLET   1X/DAY  PO
     Route: 048
     Dates: start: 20071204, end: 20071205

REACTIONS (11)
  - BURNING SENSATION [None]
  - FAECAL INCONTINENCE [None]
  - FALL [None]
  - FEELING ABNORMAL [None]
  - FEELING HOT [None]
  - HANGOVER [None]
  - HEAD INJURY [None]
  - LOSS OF CONSCIOUSNESS [None]
  - MOUTH INJURY [None]
  - PARAESTHESIA [None]
  - RESTLESSNESS [None]
